FAERS Safety Report 7529146-6 (Version None)
Quarter: 2011Q2

REPORT INFORMATION
  Report Type: 
  Country: None (occurrence: None)
  Receive Date: 20110607
  Receipt Date: 20050121
  Transmission Date: 20111010
  Serious: Yes (Death, Life-Threatening, Hospitalization, Other)
  Sender: FDA-Public Use
  Company Number: PHFR2005GB00444

PATIENT
  Sex: Male

DRUGS (1)
  1. CLOZARIL [Suspect]
     Indication: SCHIZOPHRENIA
     Dosage: 200MG/DAY
     Route: 048
     Dates: start: 20041229

REACTIONS (8)
  - CYANOSIS [None]
  - LUNG DISORDER [None]
  - CARDIAC DISORDER [None]
  - SOMNOLENCE [None]
  - CHEYNE-STOKES RESPIRATION [None]
  - PULMONARY OEDEMA [None]
  - DYSPNOEA [None]
  - INSOMNIA [None]
